FAERS Safety Report 9292887 (Version 3)
Quarter: 2013Q2

REPORT INFORMATION
  Report Type: Report from Study
  Country: US (occurrence: US)
  Receive Date: 20130516
  Receipt Date: 20130625
  Transmission Date: 20140414
  Serious: Yes (Death)
  Sender: FDA-Public Use
  Company Number: US-JNJFOC-20130507225

PATIENT
  Age: 72 Year
  Sex: Female
  Weight: 94.3 kg

DRUGS (9)
  1. IBUPROFEN [Suspect]
     Indication: RHEUMATOID ARTHRITIS
     Route: 048
     Dates: start: 20130321
  2. IBUPROFEN [Suspect]
     Indication: OSTEOARTHRITIS
     Route: 048
     Dates: start: 20130321
  3. NEXIUM [Concomitant]
     Indication: PROPHYLAXIS
     Route: 048
     Dates: start: 20130321
  4. PERCOCET [Concomitant]
     Indication: NEURALGIA
     Dates: start: 201208
  5. CALCIUM WITH VITAMIN D [Concomitant]
     Indication: PROPHYLAXIS
     Dates: start: 2002
  6. MULTIVITAMINS [Concomitant]
     Indication: ROUTINE HEALTH MAINTENANCE
     Dates: start: 2008
  7. FISH OIL [Concomitant]
     Indication: CARDIOVASCULAR EVENT PROPHYLAXIS
     Dates: start: 201302
  8. METOPROLOL [Concomitant]
     Indication: HYPERTENSION
     Dates: start: 201209
  9. LISINOPRIL [Concomitant]
     Indication: HYPERTENSION
     Dates: start: 2009

REACTIONS (2)
  - Arrhythmia [Fatal]
  - Arteriosclerosis coronary artery [Fatal]
